FAERS Safety Report 8015452-8 (Version None)
Quarter: 2011Q4

REPORT INFORMATION
  Report Type: 
  Country: None (occurrence: None)
  Receive Date: 20111230
  Receipt Date: 20111017
  Transmission Date: 20120403
  Serious: Yes (Hospitalization, Other)
  Sender: FDA-Public Use
  Company Number: US-BAYER-2011-008434

PATIENT
  Age: 16 Year
  Sex: Female
  Weight: 101.13 kg

DRUGS (8)
  1. PHENERGAN [Concomitant]
  2. PROMETHAZINE [Concomitant]
     Dosage: 25 MG, UNK
     Dates: start: 20081222, end: 20090106
  3. YAZ [Suspect]
     Indication: DYSMENORRHOEA
  4. DROSPIRENONE AND ETHINYL ESTRADIOL [Suspect]
     Indication: MENSTRUATION IRREGULAR
     Dosage: UNK
     Route: 048
     Dates: start: 20081216, end: 20090301
  5. DICYCLOMINE [Concomitant]
     Dosage: 10 MG, UNK
     Dates: start: 20081216, end: 20090106
  6. YAZ [Suspect]
     Indication: MENSTRUATION IRREGULAR
     Dosage: UNK
     Dates: start: 20070701, end: 20070801
  7. BENTYL [Concomitant]
  8. NEXIUM [Concomitant]
     Dosage: UNK
     Dates: start: 20090106

REACTIONS (10)
  - PSYCHOLOGICAL TRAUMA [None]
  - GALLBLADDER PAIN [None]
  - POST CHOLECYSTECTOMY SYNDROME [None]
  - ANHEDONIA [None]
  - CHOLECYSTITIS CHRONIC [None]
  - PAIN [None]
  - GALLBLADDER DISORDER [None]
  - MUSCLE SPASMS [None]
  - ANXIETY [None]
  - EPIGASTRIC DISCOMFORT [None]
